FAERS Safety Report 8206285-8 (Version None)
Quarter: 2012Q1

REPORT INFORMATION
  Report Type: 
  Country: None (occurrence: None)
  Receive Date: 20120313
  Receipt Date: 20120305
  Transmission Date: 20120608
  Serious: Yes (Other)
  Sender: FDA-Public Use
  Company Number: PHHY2012DE020089

PATIENT
  Sex: Male

DRUGS (4)
  1. EXJADE [Suspect]
     Indication: REFRACTORY ANAEMIA
     Dosage: 1000 MG
     Route: 048
     Dates: start: 20111101
  2. DESFERAL [Concomitant]
     Dosage: 4X4G/WEEK
  3. EXJADE [Suspect]
     Indication: MYELODYSPLASTIC SYNDROME
     Dosage: 500 MG
     Route: 048
  4. DESFERAL [Concomitant]
     Dosage: 3X4G/WEEK

REACTIONS (4)
  - MACULAR DEGENERATION [None]
  - VISUAL IMPAIRMENT [None]
  - VISUAL ACUITY REDUCED [None]
  - CATARACT [None]
